FAERS Safety Report 9602495 (Version 5)
Quarter: 2014Q1

REPORT INFORMATION
  Report Type: Spontaneous
  Country: JP (occurrence: JP)
  Receive Date: 20131007
  Receipt Date: 20140328
  Transmission Date: 20141002
  Serious: Yes (Hospitalization)
  Sender: FDA-Public Use
  Company Number: JP-ASTRAZENECA-2013SE69103

PATIENT
  Age: 51 Year
  Sex: Male
  Weight: 42 kg

DRUGS (12)
  1. DIPRIVAN KIT [Suspect]
     Indication: INDUCTION AND MAINTENANCE OF ANAESTHESIA
     Route: 042
     Dates: start: 20130423, end: 20130423
  2. XYLOCAINE [Concomitant]
     Indication: ANALGESIC THERAPY
     Route: 008
     Dates: start: 20130423, end: 20130423
  3. FENTANYL [Concomitant]
     Indication: ANALGESIC THERAPY
     Route: 042
     Dates: start: 20130423, end: 20130424
  4. BRIDION [Concomitant]
     Indication: HYPOTONIA
     Route: 042
     Dates: start: 20130423, end: 20130423
  5. EPHEDRIN [Concomitant]
     Indication: HYPOTENSION
     Route: 042
     Dates: start: 20130423, end: 20130423
  6. ESLAX [Concomitant]
     Indication: HYPOTONIA
     Route: 042
     Dates: start: 20130423, end: 20130423
  7. ESLAX [Concomitant]
     Indication: HYPOTONIA
     Route: 065
     Dates: start: 20130423, end: 20130423
  8. NEO-SYNESIN [Concomitant]
     Indication: HYPOTENSION
     Route: 042
     Dates: start: 20130423, end: 20130423
  9. ULTIVA [Concomitant]
     Route: 042
     Dates: start: 20130423, end: 20130423
  10. POPSCAINE [Concomitant]
     Indication: ANALGESIC THERAPY
     Route: 008
     Dates: start: 20130423, end: 20130423
  11. ROPION [Concomitant]
     Indication: ANALGESIC THERAPY
     Route: 042
     Dates: start: 20130423, end: 20130424
  12. RASENAZOLIN [Concomitant]
     Indication: ANTIBIOTIC PROPHYLAXIS
     Route: 042
     Dates: start: 20130423, end: 20130424

REACTIONS (1)
  - Hyperkalaemia [Recovering/Resolving]
